FAERS Safety Report 21800638 (Version 2)
Quarter: 2023Q1

REPORT INFORMATION
  Report Type: Report from Study
  Country: US (occurrence: US)
  Receive Date: 20221230
  Receipt Date: 20230306
  Transmission Date: 20230418
  Serious: Yes (Hospitalization)
  Sender: FDA-Public Use
  Company Number: US-BIOVITRUM-2022US15888

PATIENT
  Age: 1 Year
  Sex: Female
  Weight: 8 kg

DRUGS (8)
  1. SYNAGIS [Suspect]
     Active Substance: PALIVIZUMAB
     Indication: Antiviral prophylaxis
     Route: 030
     Dates: start: 20221122
  2. SYNAGIS [Suspect]
     Active Substance: PALIVIZUMAB
  3. CALCIUM [Concomitant]
     Active Substance: CALCIUM
  4. VITAMINS [Concomitant]
     Active Substance: VITAMINS
  5. VITAMIN D [Concomitant]
     Active Substance: VITAMIN D NOS
  6. ALBUTEROL [Concomitant]
     Active Substance: ALBUTEROL
  7. ALBUTEROL SULFATE [Concomitant]
     Active Substance: ALBUTEROL SULFATE
  8. BUDESONIDE [Concomitant]
     Active Substance: BUDESONIDE

REACTIONS (5)
  - Respiratory rate increased [Unknown]
  - Pyrexia [Recovered/Resolved]
  - Influenza [Unknown]
  - COVID-19 [Unknown]
  - Respiratory tract infection [Unknown]
